FAERS Safety Report 16793514 (Version 1)
Quarter: 2019Q3

REPORT INFORMATION
  Report Type: Spontaneous
  Country: FR (occurrence: FR)
  Receive Date: 20190911
  Receipt Date: 20190911
  Transmission Date: 20191005
  Serious: Yes (Other)
  Sender: FDA-Public Use
  Company Number: FR-TEVA-2019-FR-1103727

PATIENT
  Age: 47 Year
  Sex: Female

DRUGS (1)
  1. VENLAFAXINE [Suspect]
     Active Substance: VENLAFAXINE HYDROCHLORIDE
     Indication: PRODUCT ADMINISTRATION ERROR
     Dosage: 225 MG
     Route: 048
     Dates: start: 20190813, end: 20190813

REACTIONS (5)
  - Malaise [Recovered/Resolved]
  - Product administration error [Recovered/Resolved]
  - Electrocardiogram ST segment depression [Recovered/Resolved]
  - Medication error [Recovered/Resolved]
  - Wrong patient received product [Recovered/Resolved]

NARRATIVE: CASE EVENT DATE: 20190813
